FAERS Safety Report 24976450 (Version 1)
Quarter: 2025Q1

REPORT INFORMATION
  Report Type: Spontaneous
  Country: US (occurrence: US)
  Receive Date: 20250217
  Receipt Date: 20250217
  Transmission Date: 20250409
  Serious: Yes (Other)
  Sender: ASTELLAS
  Company Number: US-ASTELLAS-2025-AER-008131

PATIENT
  Sex: Female

DRUGS (1)
  1. PADCEV [Suspect]
     Active Substance: ENFORTUMAB VEDOTIN-EJFV
     Indication: Transitional cell cancer of renal pelvis and ureter metastatic
     Route: 065

REACTIONS (3)
  - Loss of consciousness [Recovered/Resolved]
  - Rash [Recovering/Resolving]
  - Dehydration [Unknown]
